FAERS Safety Report 7792267-7 (Version None)
Quarter: 2011Q3

REPORT INFORMATION
  Report Type: 
  Country: None (occurrence: None)
  Receive Date: 20110930
  Receipt Date: 20110930
  Transmission Date: 20111222
  Serious: Yes (Disabling)
  Sender: FDA-Public Use
  Company Number: None

PATIENT
  Sex: Male
  Weight: 75 kg

DRUGS (2)
  1. PROPECIA [Suspect]
     Indication: ALOPECIA
     Dates: start: 20010101
  2. PROPECIA [Suspect]
     Indication: ALOPECIA
     Dates: start: 20080801

REACTIONS (9)
  - SKIN ATROPHY [None]
  - LIP PAIN [None]
  - CHAPPED LIPS [None]
  - PEYRONIE'S DISEASE [None]
  - URETHRAL PERFORATION [None]
  - PENILE CURVATURE [None]
  - LIP DRY [None]
  - SCAR [None]
  - STICKY SKIN [None]
